FAERS Safety Report 5649111-3 (Version None)
Quarter: 2008Q1

REPORT INFORMATION
  Report Type: 
  Country: None (occurrence: None)
  Receive Date: 20080304
  Receipt Date: 20080221
  Transmission Date: 20080703
  Serious: Yes (Hospitalization)
  Sender: FDA-Public Use
  Company Number: US-ELI_LILLY_AND_COMPANY-US200802005073

PATIENT
  Sex: Male

DRUGS (3)
  1. FORTEO [Suspect]
     Route: 058
  2. DIGOXIN [Concomitant]
  3. FUROSEMIDE [Concomitant]

REACTIONS (1)
  - HOSPITALISATION [None]
